FAERS Safety Report 5987772-X (Version None)
Quarter: 2008Q4

REPORT INFORMATION
  Report Type: 
  Country: None (occurrence: None)
  Receive Date: 20081209
  Receipt Date: 20080409
  Transmission Date: 20090506
  Serious: No
  Sender: FDA-Public Use
  Company Number: US-BAYER-200819530NA

PATIENT
  Age: 85 Year
  Sex: Female
  Weight: 54 kg

DRUGS (1)
  1. CLIMARA PRO [Suspect]
     Indication: SERUM SEROTONIN DECREASED
     Route: 062
     Dates: start: 20080101

REACTIONS (10)
  - APPLICATION SITE ERYTHEMA [None]
  - APPLICATION SITE PRURITUS [None]
  - BREAST PAIN [None]
  - BREAST TENDERNESS [None]
  - CONTUSION [None]
  - FALL [None]
  - INSOMNIA [None]
  - NIPPLE PAIN [None]
  - SKELETAL INJURY [None]
  - VAGINAL DISCHARGE [None]
